FAERS Safety Report 23192990 (Version 3)
Quarter: 2024Q1

REPORT INFORMATION
  Report Type: Spontaneous
  Country: US (occurrence: US)
  Receive Date: 20231116
  Receipt Date: 20240104
  Transmission Date: 20240410
  Serious: No
  Sender: FDA-Public Use
  Company Number: US-BRISTOL-MYERS SQUIBB COMPANY-2023-165472

PATIENT
  Age: 51 Year
  Sex: Female
  Weight: 66.68 kg

DRUGS (1)
  1. LENALIDOMIDE [Suspect]
     Active Substance: LENALIDOMIDE
     Indication: Plasma cell myeloma
     Dosage: DAILY ON DAYS 1-28 OF 28 DAY CYCLE
     Route: 048
     Dates: start: 20231109

REACTIONS (3)
  - Rash [Not Recovered/Not Resolved]
  - Laboratory test abnormal [Unknown]
  - Nasopharyngitis [Not Recovered/Not Resolved]

NARRATIVE: CASE EVENT DATE: 20230101
